FAERS Safety Report 22899494 (Version 3)
Quarter: 2023Q4

REPORT INFORMATION
  Report Type: Report from Study
  Country: ES (occurrence: None)
  Receive Date: 20230904
  Receipt Date: 20231025
  Transmission Date: 20240109
  Serious: Yes (Hospitalization)
  Sender: FDA-Public Use
  Company Number: ES-ROCHE-3415311

PATIENT
  Age: 46 Year
  Sex: Female

DRUGS (9)
  1. ATEZOLIZUMAB [Suspect]
     Active Substance: ATEZOLIZUMAB
     Indication: Colorectal cancer metastatic
     Dosage: ON 31/AUG/2023, 19/SEP/2023, THE PATIENT RECEIVED THE MOST RECENT DOSE OF ATEZOLIZUMAB 1200 MG PRIOR
     Route: 041
     Dates: start: 20230810
  2. ZANZALINTINIB [Suspect]
     Active Substance: ZANZALINTINIB
     Indication: Colorectal cancer metastatic
     Route: 048
     Dates: start: 20230810, end: 20230810
  3. ZANZALINTINIB [Suspect]
     Active Substance: ZANZALINTINIB
     Dosage: ON 21/AUG/2023, THE PATIENT RECEIVED THE MOST RECENT DOSE OF XL092 AT 60 MG QD PRIOR TO THE EVENT ON
     Route: 048
     Dates: start: 20230821, end: 20230822
  4. ZANZALINTINIB [Suspect]
     Active Substance: ZANZALINTINIB
     Route: 048
     Dates: start: 20230831, end: 20230901
  5. MAGNESIUM SALICYLATE [Concomitant]
     Active Substance: MAGNESIUM SALICYLATE
     Dates: start: 20230731
  6. OMEPRAZOLE [Concomitant]
     Active Substance: OMEPRAZOLE
     Dates: start: 20230731
  7. MORPHINE SULFATE [Concomitant]
     Active Substance: MORPHINE SULFATE
     Dates: start: 20230818
  8. MORPHINE [Concomitant]
     Active Substance: MORPHINE
     Dates: start: 20230731
  9. PRIMPERAN [Concomitant]
     Active Substance: METOCLOPRAMIDE HYDROCHLORIDE
     Dates: start: 20230818, end: 20230821

REACTIONS (1)
  - Pyrexia [Recovered/Resolved]

NARRATIVE: CASE EVENT DATE: 20230822
